FAERS Safety Report 5621855-9 (Version None)
Quarter: 2008Q1

REPORT INFORMATION
  Report Type: 
  Country: None (occurrence: None)
  Receive Date: 20080211
  Receipt Date: 20071112
  Transmission Date: 20080703
  Serious: No
  Sender: FDA-Public Use
  Company Number: US-BRISTOL-MYERS SQUIBB COMPANY-13979703

PATIENT
  Age: 53 Year
  Sex: Female
  Weight: 70 kg

DRUGS (6)
  1. IXEMPRA [Suspect]
     Indication: BREAST CANCER
     Dates: start: 20071107, end: 20071107
  2. OMEPRAZOLE [Concomitant]
  3. SINGULAIR [Concomitant]
  4. PAROXETINE [Concomitant]
  5. POTASSIUM CHLORIDE [Concomitant]
  6. MULTI-VITAMIN [Concomitant]

REACTIONS (1)
  - PARAESTHESIA [None]
